FAERS Safety Report 15806057 (Version 1)
Quarter: 2019Q1

REPORT INFORMATION
  Report Type: Spontaneous
  Country: CN (occurrence: CN)
  Receive Date: 20190110
  Receipt Date: 20190110
  Transmission Date: 20190417
  Serious: Yes (Other)
  Sender: FDA-Public Use
  Company Number: CN-DRREDDYS-USA/CHN/19/0106670

PATIENT
  Age: 12 Year
  Sex: Female

DRUGS (1)
  1. OLANZAPINE FILM-COATED TABLET [Suspect]
     Active Substance: OLANZAPINE
     Indication: SCHIZOPHRENIA
     Route: 048
     Dates: start: 2016, end: 2016

REACTIONS (2)
  - Loss of personal independence in daily activities [Unknown]
  - Somnolence [Unknown]

NARRATIVE: CASE EVENT DATE: 2016
